FAERS Safety Report 10238307 (Version 3)
Quarter: 2014Q3

REPORT INFORMATION
  Report Type: Spontaneous
  Country: US (occurrence: US)
  Receive Date: 20140616
  Receipt Date: 20140722
  Transmission Date: 20150326
  Serious: No
  Sender: FDA-Public Use
  Company Number: US-PFIZER INC-2014161793

PATIENT
  Sex: Male

DRUGS (1)
  1. NEURONTIN [Suspect]
     Active Substance: GABAPENTIN
     Indication: PAIN
     Dosage: 3000 MG, DAILY (10 300MG PER DAY)

REACTIONS (4)
  - Drug ineffective [Unknown]
  - Anger [Unknown]
  - Nervous system disorder [Unknown]
  - Memory impairment [Unknown]
